FAERS Safety Report 9935651 (Version 3)
Quarter: 2014Q1

REPORT INFORMATION
  Report Type: Report from Study
  Country: US (occurrence: US)
  Receive Date: 20140228
  Receipt Date: 20140322
  Transmission Date: 20141002
  Serious: Yes (Hospitalization)
  Sender: FDA-Public Use
  Company Number: PHEH2014US002729

PATIENT
  Sex: Female

DRUGS (2)
  1. GILENYA [Suspect]
     Indication: MULTIPLE SCLEROSIS
     Dosage: 0.5 MG, QD
     Route: 048
     Dates: start: 20110215
  2. AMPYRA [Concomitant]

REACTIONS (12)
  - Gait disturbance [Unknown]
  - Palpitations [Unknown]
  - Anxiety [Unknown]
  - Choking sensation [Unknown]
  - Hyperhidrosis [Unknown]
  - Nausea [Unknown]
  - Paraesthesia [Unknown]
  - Dyspnoea [Unknown]
  - Diarrhoea [Unknown]
  - Dizziness [Unknown]
  - Asthenia [Unknown]
  - Fall [Recovering/Resolving]
